FAERS Safety Report 8839313 (Version 2)
Quarter: 2012Q4

REPORT INFORMATION
  Report Type: Report from Study
  Country: US (occurrence: US)
  Receive Date: 20121015
  Receipt Date: 20121206
  Transmission Date: 20130627
  Serious: Yes (Other)
  Sender: FDA-Public Use
  Company Number: US-JNJFOC-20121003803

PATIENT
  Sex: Male
  Weight: 74.84 kg

DRUGS (4)
  1. REMICADE [Suspect]
     Indication: COLITIS ULCERATIVE
     Route: 042
     Dates: start: 201204, end: 201209
  2. PREDNISONE [Suspect]
     Indication: COLITIS ULCERATIVE
     Route: 065
     Dates: end: 201209
  3. ASACOL [Concomitant]
     Indication: COLITIS ULCERATIVE
     Route: 048
  4. DIOVAN [Concomitant]
     Indication: HYPERTENSION
     Route: 048
     Dates: start: 2005

REACTIONS (1)
  - Bladder cancer [Not Recovered/Not Resolved]
